FAERS Safety Report 10725251 (Version 2)
Quarter: 2015Q1

REPORT INFORMATION
  Report Type: Spontaneous
  Country: FR (occurrence: FR)
  Receive Date: 20150120
  Receipt Date: 20150224
  Transmission Date: 20150721
  Serious: Yes (Life-Threatening, Hospitalization, Other)
  Sender: FDA-Public Use
  Company Number: US-ASTRAZENECA-2015SE04851

PATIENT
  Age: 2 Month
  Sex: Male
  Weight: 3.4 kg

DRUGS (5)
  1. INEXIUM [Concomitant]
     Active Substance: ESOMEPRAZOLE
     Indication: PRODUCT USED FOR UNKNOWN INDICATION
     Dosage: FROM FEW DAYS
     Route: 065
  2. GAVISCON [Concomitant]
     Active Substance: ALUMINUM HYDROXIDE\MAGNESIUM CARBONATE
     Indication: PRODUCT USED FOR UNKNOWN INDICATION
     Dosage: FROM FEW DAYS
     Route: 065
  3. SPECIAFOLDINE [Concomitant]
     Active Substance: FOLIC ACID
     Indication: PRODUCT USED FOR UNKNOWN INDICATION
     Dosage: FROM FEW WEEKS
     Route: 065
  4. SYNAGIS [Suspect]
     Active Substance: PALIVIZUMAB
     Indication: ANTIVIRAL PROPHYLAXIS
     Route: 030
  5. FERROSTRANE [Concomitant]
     Active Substance: SODIUM FEREDETATE
     Indication: PRODUCT USED FOR UNKNOWN INDICATION
     Dosage: FROM FEW WEEKS
     Route: 065

REACTIONS (8)
  - Malaise [Recovered/Resolved]
  - Apnoea [Recovered/Resolved]
  - Cyanosis [Recovered/Resolved]
  - Respiratory syncytial virus bronchiolitis [Recovering/Resolving]
  - Cough [Recovered/Resolved]
  - Hyperthermia [Recovered/Resolved]
  - Hypotonia [Recovered/Resolved]
  - Dyspnoea [Recovered/Resolved]

NARRATIVE: CASE EVENT DATE: 20141230
